FAERS Safety Report 14745169 (Version 1)
Quarter: 2018Q2

REPORT INFORMATION
  Report Type: Spontaneous
  Country: US (occurrence: US)
  Receive Date: 20180411
  Receipt Date: 20180411
  Transmission Date: 20180711
  Serious: Yes (Death, Other)
  Sender: FDA-Public Use
  Company Number: US-ROCHE-2099783

PATIENT
  Age: 6 Decade
  Sex: Male

DRUGS (1)
  1. RITUXAN [Suspect]
     Active Substance: RITUXIMAB
     Indication: LYMPHOMA
     Route: 042

REACTIONS (12)
  - Brain oedema [Unknown]
  - Orchitis [Unknown]
  - Gait disturbance [Unknown]
  - Ill-defined disorder [Unknown]
  - Encephalitis [Fatal]
  - Speech disorder [Unknown]
  - Unresponsive to stimuli [Unknown]
  - Depressed level of consciousness [Unknown]
  - Pyrexia [Unknown]
  - Testicular pain [Unknown]
  - Brain injury [Unknown]
  - Condition aggravated [Unknown]

NARRATIVE: CASE EVENT DATE: 201612
